FAERS Safety Report 10047150 (Version 2)
Quarter: 2014Q1

REPORT INFORMATION
  Report Type: Spontaneous
  Country: US (occurrence: US)
  Receive Date: 20140331
  Receipt Date: 20140331
  Transmission Date: 20141002
  Serious: No
  Sender: FDA-Public Use
  Company Number: US-MYLANLABS-2013S1012595

PATIENT
  Age: 78 Year
  Sex: Female
  Weight: 58.97 kg

DRUGS (9)
  1. FENTANYL TRANSDERMAL SYSTEM [Suspect]
     Indication: BACK PAIN
     Dosage: Q72H
     Route: 062
     Dates: start: 20130509
  2. FENTANYL TRANSDERMAL SYSTEM [Suspect]
     Indication: PAIN IN EXTREMITY
     Dosage: Q72H
     Route: 062
     Dates: start: 20130509
  3. FENTANYL TRANSDERMAL SYSTEM [Suspect]
     Indication: PAIN
     Dosage: Q72H
     Route: 062
     Dates: start: 20130509
  4. HYDROCODONE [Concomitant]
  5. GABAPENTIN [Concomitant]
  6. CALCIUM [Concomitant]
     Dosage: IN THE MORNING
  7. ASPIRIN [Concomitant]
     Dosage: TAKE IN THE MORNING
  8. VITAMIN D [Concomitant]
     Dosage: TAKE IN THE MORNING
  9. VITAMIN [Concomitant]
     Dosage: TAKE IN THE MORNING

REACTIONS (2)
  - Incorrect drug administration duration [Not Recovered/Not Resolved]
  - Pain [Not Recovered/Not Resolved]
